FAERS Safety Report 4562690-2 (Version None)
Quarter: 2005Q1

REPORT INFORMATION
  Report Type: 
  Country: None (occurrence: None)
  Receive Date: 20050124
  Receipt Date: 20050111
  Transmission Date: 20050727
  Serious: Yes (Life-Threatening)
  Sender: FDA-Public Use
  Company Number: 2005010148

PATIENT
  Age: 11 Year
  Sex: Female

DRUGS (5)
  1. NIFEDIPINE [Suspect]
     Indication: HYPERTENSION
     Dosage: 15 MG, ORAL
     Route: 048
     Dates: start: 20041216, end: 20041216
  2. METHYLPREDNISOLONE [Concomitant]
  3. PREDNISOLONE [Concomitant]
  4. METHOTREXATE [Concomitant]
  5. FOLIC ACID [Concomitant]

REACTIONS (2)
  - ANAPHYLACTIC REACTION [None]
  - OEDEMA PERIPHERAL [None]
